FAERS Safety Report 13502284 (Version 2)
Quarter: 2017Q2

REPORT INFORMATION
  Report Type: Spontaneous
  Country: US (occurrence: US)
  Receive Date: 20170502
  Receipt Date: 20170522
  Transmission Date: 20170830
  Serious: Yes (Death)
  Sender: FDA-Public Use
  Company Number: US-ROCHE-1927450

PATIENT
  Age: 93 Year
  Sex: Female

DRUGS (1)
  1. ERIVEDGE [Suspect]
     Active Substance: VISMODEGIB
     Indication: BASAL CELL CARCINOMA
     Dosage: ONCE DAILY AT BEDTIME
     Route: 048
     Dates: start: 20160116, end: 20170424

REACTIONS (1)
  - Hip fracture [Fatal]

NARRATIVE: CASE EVENT DATE: 20170424
